FAERS Safety Report 9369041 (Version 2)
Quarter: 2013Q3

REPORT INFORMATION
  Report Type: Spontaneous
  Country: BR (occurrence: BR)
  Receive Date: 20130626
  Receipt Date: 20130828
  Transmission Date: 20140515
  Serious: Yes (Other)
  Sender: FDA-Public Use
  Company Number: PHHY2013BR065132

PATIENT
  Age: 73 Year
  Sex: Male

DRUGS (5)
  1. LOTENSIN [Suspect]
     Indication: BLOOD PRESSURE
     Dosage: 2 DF, (5 MG) DAILY
     Route: 048
  2. LOTENSIN [Suspect]
     Dosage: 0.5 DF, (10 MG), BID (HALF TABLET IN THE MORNING AND HALF TABLET AT NIGHT)
     Route: 048
  3. LOTENSIN [Suspect]
     Dosage: 2 DF (5 MG), DAILY
     Route: 048
  4. ROXFLAN [Concomitant]
     Indication: HYPERTENSION
     Dosage: 1 DF, (5 MG) IN THE MORNING
  5. AAS [Concomitant]
     Indication: CARDIOVASCULAR DISORDER
     Dosage: 1 DF, (100 MG) AFTER LUNCH

REACTIONS (3)
  - Cerebrovascular accident [Not Recovered/Not Resolved]
  - Blood pressure increased [Recovering/Resolving]
  - Wrong technique in drug usage process [Unknown]
